FAERS Safety Report 23204377 (Version 3)
Quarter: 2023Q4

REPORT INFORMATION
  Report Type: Report from Study
  Country: US (occurrence: US)
  Receive Date: 20231120
  Receipt Date: 20231204
  Transmission Date: 20240110
  Serious: No
  Sender: FDA-Public Use
  Company Number: US-002147023-NVSC2023US246605

PATIENT
  Sex: Female

DRUGS (3)
  1. ENTRESTO [Suspect]
     Active Substance: SACUBITRIL\VALSARTAN
     Indication: Product used for unknown indication
     Dosage: UNK
     Route: 065
  2. ENTRESTO [Suspect]
     Active Substance: SACUBITRIL\VALSARTAN
     Dosage: UNK, BID (49/51MG TABLETS IN THE MORNING AND TAKES 2 TABLETS IN THE EVENING)
     Route: 065
  3. ENTRESTO [Suspect]
     Active Substance: SACUBITRIL\VALSARTAN
     Dosage: UNK (24/26MG TABLETS, 1 IN THE MORNING AND 2 IN THE EVENING)
     Route: 065

REACTIONS (4)
  - Dysphonia [Unknown]
  - Malaise [Unknown]
  - Product packaging issue [Unknown]
  - Wrong technique in product usage process [Recovered/Resolved]
